FAERS Safety Report 7926998-2 (Version None)
Quarter: 2011Q4

REPORT INFORMATION
  Report Type: 
  Country: None (occurrence: None)
  Receive Date: 20111118
  Receipt Date: 20111109
  Transmission Date: 20120403
  Serious: Yes (Hospitalization, Other)
  Sender: FDA-Public Use
  Company Number: US-AMGEN-USASP2011054025

PATIENT
  Age: 63 Year
  Sex: Female
  Weight: 107.94 kg

DRUGS (24)
  1. AZULFIDINE [Concomitant]
     Dosage: 500 MG
     Route: 048
  2. ATENOLOL [Concomitant]
     Dosage: 25 MG, QD
  3. TYLENOL                            /00435101/ [Concomitant]
     Dosage: UNK
     Route: 048
  4. ASPIRIN [Concomitant]
     Dosage: 325 MG, QD
     Route: 048
  5. COUMADIN [Concomitant]
     Dosage: 4 MG, UNK
     Route: 048
  6. CALTRATE                           /00751519/ [Concomitant]
     Dosage: 600 MG, QD
     Route: 048
  7. CATAPRES                           /00171102/ [Concomitant]
     Dosage: 0.1 MG, BID
     Route: 048
  8. OMEGA-3 FATTY ACIDS [Concomitant]
     Dosage: 1000 MG, UNK
     Route: 048
  9. ENBREL [Suspect]
     Indication: RHEUMATOID ARTHRITIS
     Dosage: 50 MG, QWK
     Route: 058
     Dates: start: 20090507
  10. DARVOCET-N 50 [Concomitant]
     Dosage: UNK
     Route: 048
  11. COUMADIN [Concomitant]
     Dosage: 8 MG, UNK
     Route: 048
  12. FOSAMAX [Concomitant]
     Dosage: 70 MG, Q7D
     Route: 048
  13. CHOLECALCIFEROL [Concomitant]
     Dosage: 1000 UNIT, QD
  14. CELEBREX [Concomitant]
     Dosage: 200 MG, BID
     Route: 048
  15. CITRACAL                           /00751520/ [Concomitant]
     Dosage: ONE TABLET, QD
     Route: 048
  16. EFFEXOR XR [Concomitant]
     Dosage: 75 MG, QD
     Route: 048
  17. OMEPRAZOLE [Concomitant]
     Dosage: 40 MG, QD
     Route: 048
  18. BUMEX [Concomitant]
     Dosage: 0.5 MG, QD
     Route: 048
  19. ARAVA [Concomitant]
     Dosage: 20 MG, QD
     Route: 048
  20. ENTOCORT EC [Concomitant]
     Dosage: 3 MG, QD
     Route: 048
  21. AZULFIDINE [Concomitant]
     Dosage: 1000 MG, BID
  22. CHOLECALCIFEROL [Concomitant]
     Dosage: 2000 UNIT, QD
     Route: 048
  23. MULTI-VITAMINS [Concomitant]
     Dosage: QD
     Route: 048
  24. OMEGA-3 FATTY ACIDS [Concomitant]
     Dosage: 2000 MG, QD
     Route: 048

REACTIONS (14)
  - DYSPNOEA EXERTIONAL [None]
  - JOINT EFFUSION [None]
  - FOREARM FRACTURE [None]
  - ALOPECIA [None]
  - HYPOAESTHESIA [None]
  - ALANINE AMINOTRANSFERASE INCREASED [None]
  - PULMONARY EMBOLISM [None]
  - BURSITIS [None]
  - INJECTION SITE REACTION [None]
  - RHEUMATOID ARTHRITIS [None]
  - COLITIS MICROSCOPIC [None]
  - FATIGUE [None]
  - RHEUMATOID LUNG [None]
  - DEPRESSED MOOD [None]
